FAERS Safety Report 24113775 (Version 2)
Quarter: 2024Q3

REPORT INFORMATION
  Report Type: Spontaneous
  Country: SE (occurrence: SE)
  Receive Date: 20240720
  Receipt Date: 20240810
  Transmission Date: 20241016
  Serious: Yes (Other)
  Sender: GLENMARK
  Company Number: SE-GLENMARK PHARMACEUTICALS-2024GMK092252

PATIENT

DRUGS (3)
  1. DESLORATADINE [Suspect]
     Active Substance: DESLORATADINE
     Indication: Hypersensitivity
     Dosage: UNK, (1-2 TABLETS, 1-2 TIMES PER DAY)
     Route: 048
  2. MONTELUKAST [Concomitant]
     Active Substance: MONTELUKAST SODIUM
     Indication: Product used for unknown indication
     Dosage: UNK
     Route: 048
  3. AZELASTINE HYDROCHLORIDE AND FLUTICASONE PROPIONATE [Concomitant]
     Active Substance: AZELASTINE HYDROCHLORIDE\FLUTICASONE PROPIONATE
     Indication: Product used for unknown indication
     Dosage: UNK (FLUTISTA)
     Route: 045

REACTIONS (7)
  - Foreign body in throat [Unknown]
  - Product use complaint [Unknown]
  - Product use in unapproved indication [Unknown]
  - Product after taste [Unknown]
  - Product coating issue [Unknown]
  - Product packaging issue [Unknown]
  - Product size issue [Unknown]
